FAERS Safety Report 6732854-8 (Version None)
Quarter: 2010Q2

REPORT INFORMATION
  Report Type: 
  Country: None (occurrence: None)
  Receive Date: 20100519
  Receipt Date: 20100507
  Transmission Date: 20101027
  Serious: Yes (Hospitalization, Other)
  Sender: FDA-Public Use
  Company Number: TW-ELI_LILLY_AND_COMPANY-TW201005003544

PATIENT
  Age: 46 Year
  Sex: Male

DRUGS (4)
  1. ZYPREXA [Suspect]
     Indication: SCHIZOPHRENIA
     Dosage: 15 MG, UNK
     Route: 048
     Dates: start: 20021101, end: 20090801
  2. ZYPREXA [Suspect]
     Dosage: 15 MG, UNK
     Route: 048
     Dates: start: 20090818, end: 20100331
  3. SULPIRIDE [Concomitant]
     Dosage: 1000 MG, UNK
     Dates: end: 20090801
  4. DEPAKENE [Concomitant]
     Dosage: 400 MG, UNK
     Dates: end: 20090801

REACTIONS (6)
  - HYPERTENSIVE CRISIS [None]
  - HYPONATRAEMIA [None]
  - LEFT VENTRICULAR HYPERTROPHY [None]
  - RHABDOMYOLYSIS [None]
  - SYNCOPE [None]
  - WHITE BLOOD CELL COUNT INCREASED [None]
